FAERS Safety Report 13607400 (Version 2)
Quarter: 2017Q2

REPORT INFORMATION
  Report Type: Spontaneous
  Country: US (occurrence: US)
  Receive Date: 20170602
  Receipt Date: 20170605
  Transmission Date: 20170830
  Serious: No
  Sender: FDA-Public Use
  Company Number: US-GLAXOSMITHKLINE-US2017GSK079379

PATIENT
  Age: 53 Year
  Sex: Female

DRUGS (1)
  1. VENTOLIN HFA [Suspect]
     Active Substance: ALBUTEROL SULFATE
     Dosage: 1 TO 2 PUFFS EVERY 6 HOURS PRN

REACTIONS (2)
  - Drug dose omission [Unknown]
  - Wheezing [Unknown]

NARRATIVE: CASE EVENT DATE: 201704
